FAERS Safety Report 6072351-9 (Version None)
Quarter: 2009Q1

REPORT INFORMATION
  Report Type: 
  Country: None (occurrence: None)
  Receive Date: 20090210
  Receipt Date: 20090205
  Transmission Date: 20090719
  Serious: Yes (Other)
  Sender: FDA-Public Use
  Company Number: CN-JNJFOC-20090201815

PATIENT
  Age: 6 Month
  Sex: Male
  Weight: 8 kg

DRUGS (2)
  1. ANTUSS INFANTS DECONGESTANT + COUGH [Suspect]
     Indication: NASOPHARYNGITIS
     Route: 048
  2. COUGH MEDICATION [Concomitant]
     Indication: COUGH

REACTIONS (2)
  - ACCIDENTAL OVERDOSE [None]
  - VOMITING [None]
